FAERS Safety Report 18261073 (Version 3)
Quarter: 2021Q2

REPORT INFORMATION
  Report Type: Spontaneous
  Country: CA (occurrence: CA)
  Receive Date: 20200914
  Receipt Date: 20210429
  Transmission Date: 20210717
  Serious: Yes (Hospitalization, Other)
  Sender: FDA-Public Use
  Company Number: CA-AUROBINDO-AUR-APL-2020-047544

PATIENT
  Age: 48 Year
  Sex: Female
  Weight: 102 kg

DRUGS (4)
  1. NALOXONE [Suspect]
     Active Substance: NALOXONE
     Indication: VASOPLEGIA SYNDROME
     Dosage: UNK
     Route: 041
  2. AMLODIPINE [Suspect]
     Active Substance: AMLODIPINE BESYLATE
     Indication: HYPERTENSION
     Dosage: 252 MILLIGRAM
     Route: 048
  3. NALOXONE [Suspect]
     Active Substance: NALOXONE
     Indication: SHOCK
  4. PERINDOPRIL [Suspect]
     Active Substance: PERINDOPRIL
     Indication: HYPERTENSION
     Dosage: 180 MILLIGRAM
     Route: 048

REACTIONS (10)
  - Insulin resistance [Recovered/Resolved]
  - Overdose [Recovered/Resolved]
  - Shock [Recovered/Resolved]
  - Vasoplegia syndrome [Recovered/Resolved]
  - Hypoxia [Recovered/Resolved]
  - Rebound effect [Recovered/Resolved]
  - Hypotension [Recovered/Resolved]
  - Intentional overdose [Recovered/Resolved]
  - Toxicity to various agents [Recovered/Resolved]
  - Off label use [Recovered/Resolved]
